FAERS Safety Report 7415795-2 (Version None)
Quarter: 2011Q2

REPORT INFORMATION
  Report Type: 
  Country: None (occurrence: None)
  Receive Date: 20110414
  Receipt Date: 20110405
  Transmission Date: 20111010
  Serious: Yes (Hospitalization, Other)
  Sender: FDA-Public Use
  Company Number: US-ASTRAZENECA-2011SE14905

PATIENT
  Age: 51 Year
  Sex: Female

DRUGS (3)
  1. SYMBICORT [Suspect]
     Dosage: 160/4.5 MCG TWO PUFFS BID
     Route: 055
  2. SYMBICORT [Suspect]
     Indication: ASTHMA
     Route: 055
  3. NEXIUM [Suspect]
     Route: 048

REACTIONS (4)
  - ULCER HAEMORRHAGE [None]
  - CHRONIC HEPATIC FAILURE [None]
  - ARTERIAL OCCLUSIVE DISEASE [None]
  - ASTHMA [None]
